FAERS Safety Report 14217925 (Version 1)
Quarter: 2017Q4

REPORT INFORMATION
  Report Type: Spontaneous
  Country: US (occurrence: US)
  Receive Date: 20171123
  Receipt Date: 20171123
  Transmission Date: 20180321
  Serious: No
  Sender: FDA-Public Use
  Company Number: US-HORIZON-DUE-0210-2017

PATIENT
  Age: 45 Year
  Sex: Female

DRUGS (1)
  1. DUEXIS [Suspect]
     Active Substance: FAMOTIDINE\IBUPROFEN
     Indication: COMPLEX REGIONAL PAIN SYNDROME
     Dosage: 1 TABLET BID PRESCRIBED, PATIENT CUT IT TO 1 TABLET A DAY

REACTIONS (4)
  - Off label use [Unknown]
  - Intentional product misuse [Unknown]
  - Pain [Unknown]
  - Intentional dose omission [Unknown]
